FAERS Safety Report 21058667 (Version 7)
Quarter: 2022Q4

REPORT INFORMATION
  Report Type: Report from Study
  Country: BR (occurrence: BR)
  Receive Date: 20220708
  Receipt Date: 20221021
  Transmission Date: 20230113
  Serious: Yes (Hospitalization, Other)
  Sender: FDA-Public Use
  Company Number: BR-JNJFOC-20220702162

PATIENT
  Age: 48 Year
  Sex: Female
  Weight: 75.5 kg

DRUGS (2)
  1. ESKETAMINE [Suspect]
     Active Substance: ESKETAMINE
     Indication: Depression
     Dosage: MED KIT NUMBER-790632, 790631
     Dates: start: 20180207, end: 20220630
  2. ESKETAMINE [Suspect]
     Active Substance: ESKETAMINE
     Dosage: RECENT DOSE
     Dates: start: 20220914

REACTIONS (1)
  - Pancreatic neuroendocrine tumour [Recovering/Resolving]

NARRATIVE: CASE EVENT DATE: 20220624
